FAERS Safety Report 20330397 (Version 2)
Quarter: 2022Q1

REPORT INFORMATION
  Report Type: Spontaneous
  Country: GR (occurrence: GR)
  Receive Date: 20220113
  Receipt Date: 20220203
  Transmission Date: 20220423
  Serious: Yes (Death, Hospitalization, Other)
  Sender: FDA-Public Use
  Company Number: GR-BIOVITRUM-2022GR00304

PATIENT
  Age: 72 Year
  Sex: Male

DRUGS (4)
  1. ANAKINRA [Suspect]
     Active Substance: ANAKINRA
     Indication: COVID-19 pneumonia
     Dosage: UNKNOWN
  2. IMMUNE GLOBULIN NOS [Concomitant]
     Active Substance: IMMUNE GLOBULIN NOS
  3. TOCILIZUMAB [Concomitant]
     Active Substance: TOCILIZUMAB
  4. PREDNISOLONE [Concomitant]
     Active Substance: PREDNISOLONE

REACTIONS (4)
  - Multiple organ dysfunction syndrome [Fatal]
  - Rhinocerebral mucormycosis [Fatal]
  - Septic shock [Fatal]
  - Off label use [Recovered/Resolved]
